FAERS Safety Report 7303766-6 (Version None)
Quarter: 2011Q1

REPORT INFORMATION
  Report Type: 
  Country: None (occurrence: None)
  Receive Date: 20110221
  Receipt Date: 20110215
  Transmission Date: 20110831
  Serious: Yes (Other)
  Sender: FDA-Public Use
  Company Number: US-ROCHE-734015

PATIENT
  Sex: Male
  Weight: 72.6 kg

DRUGS (1)
  1. ACCUTANE [Suspect]
     Indication: ACNE
     Route: 065
     Dates: start: 19830101, end: 19850101

REACTIONS (6)
  - SUICIDAL IDEATION [None]
  - CROHN'S DISEASE [None]
  - GASTROINTESTINAL INJURY [None]
  - DEPRESSION [None]
  - COLITIS ULCERATIVE [None]
  - INFLAMMATORY BOWEL DISEASE [None]
